FAERS Safety Report 8473718-1 (Version None)
Quarter: 2012Q2

REPORT INFORMATION
  Report Type: 
  Country: None (occurrence: None)
  Receive Date: 20120628
  Receipt Date: 20111025
  Transmission Date: 20120825
  Serious: Yes (Death)
  Sender: FDA-Public Use
  Company Number: US-MYLANLABS-2011S1020051

PATIENT
  Age: 75 Year
  Sex: Female
  Weight: 50.35 kg

DRUGS (3)
  1. CLOZAPINE [Suspect]
     Indication: PSYCHOTIC DISORDER
     Route: 048
     Dates: start: 20090401, end: 20110901
  2. LAMICTAL [Concomitant]
  3. MORPHINE [Concomitant]

REACTIONS (1)
  - PNEUMONIA ASPIRATION [None]
